FAERS Safety Report 11276196 (Version 1)
Quarter: 2015Q3

REPORT INFORMATION
  Report Type: Spontaneous
  Country: US (occurrence: None)
  Receive Date: 20150715
  Receipt Date: 20150715
  Transmission Date: 20151125
  Serious: Yes (Life-Threatening)
  Sender: FDA-Public Use
  Company Number: None

PATIENT
  Age: 58 Year
  Sex: Female
  Weight: 79.83 kg

DRUGS (7)
  1. TIKOSYN [Concomitant]
     Active Substance: DOFETILIDE
  2. COUMADIN [Concomitant]
     Active Substance: WARFARIN SODIUM
  3. TERBINAFINE HYDOCHLORIDE [Suspect]
     Active Substance: TERBINAFINE HYDROCHLORIDE
     Indication: ONYCHOMYCOSIS
     Dosage: 250MG?30 TABLETS?1 PILL DAILY?BY MOUTH.
     Route: 048
     Dates: start: 20150519, end: 20150616
  4. ESTRACE [Concomitant]
     Active Substance: ESTRADIOL
  5. LIPITOR [Concomitant]
     Active Substance: ATORVASTATIN CALCIUM
  6. METOPROLOL [Concomitant]
     Active Substance: METOPROLOL
  7. AMBIEN [Concomitant]
     Active Substance: ZOLPIDEM TARTRATE

REACTIONS (5)
  - Cardiac arrest [None]
  - Electrocardiogram ST segment depression [None]
  - Ventricular tachycardia [None]
  - Electrocardiogram QT prolonged [None]
  - Atrial tachycardia [None]

NARRATIVE: CASE EVENT DATE: 20150615
